FAERS Safety Report 14494663 (Version 1)
Quarter: 2018Q1

REPORT INFORMATION
  Report Type: Spontaneous
  Country: SG (occurrence: SG)
  Receive Date: 20180206
  Receipt Date: 20180206
  Transmission Date: 20180509
  Serious: Yes (Other)
  Sender: FDA-Public Use
  Company Number: SG-MYLANLABS-2018M1007238

PATIENT
  Age: 6 Decade
  Sex: Male

DRUGS (3)
  1. ALENDRONATE [Suspect]
     Active Substance: ALENDRONATE SODIUM
     Dosage: 70 MG
     Route: 065
     Dates: start: 2007, end: 2012
  2. ALENDRONATE [Suspect]
     Active Substance: ALENDRONATE SODIUM
     Indication: OSTEOGENESIS IMPERFECTA
     Dosage: 70 MG WEEKLY FOR 2 YEARS
     Route: 065
  3. ETIDRONATE [Suspect]
     Active Substance: ETIDRONATE DISODIUM
     Indication: OSTEOGENESIS IMPERFECTA
     Dosage: 400MG EVERY FORTNIGHT
     Route: 065
     Dates: start: 2005, end: 2007

REACTIONS (1)
  - Atypical femur fracture [Recovering/Resolving]
